FAERS Safety Report 18078544 (Version 2)
Quarter: 2020Q3

REPORT INFORMATION
  Report Type: Spontaneous
  Country: US (occurrence: US)
  Receive Date: 20200728
  Receipt Date: 20200817
  Transmission Date: 20201103
  Serious: Yes (Other)
  Sender: FDA-Public Use
  Company Number: US-ROCHE-2647572

PATIENT
  Sex: Female

DRUGS (3)
  1. NUTROPIN [Suspect]
     Active Substance: SOMATROPIN
     Indication: SHORT STATURE
     Dosage: ONGOING: YES
     Route: 058
     Dates: start: 20200109
  2. LYSTEDA [Concomitant]
     Active Substance: TRANEXAMIC ACID
  3. NUTROPIN [Suspect]
     Active Substance: SOMATROPIN

REACTIONS (1)
  - Epistaxis [Unknown]
